FAERS Safety Report 17304905 (Version 3)
Quarter: 2020Q1

REPORT INFORMATION
  Report Type: Report from Study
  Country: None (occurrence: US)
  Receive Date: 20200122
  Receipt Date: 20200210
  Transmission Date: 20200409
  Serious: Yes (Hospitalization)
  Sender: FDA-Public Use
  Company Number: US-ABBVIE-20K-163-3237834-00

PATIENT
  Age: 76 Year
  Sex: Male
  Weight: 79.45 kg

DRUGS (7)
  1. DUOPA [Suspect]
     Active Substance: CARBIDOPA\LEVODOPA
     Indication: PARKINSON^S DISEASE
     Route: 050
     Dates: start: 20180425
  2. PRILOSAC [Concomitant]
     Indication: DYSPHAGIA
  3. ELIQUIS [Concomitant]
     Active Substance: APIXABAN
     Indication: ATRIAL FIBRILLATION
  4. OXYBUTYNIN. [Concomitant]
     Active Substance: OXYBUTYNIN CHLORIDE
     Indication: MICTURITION URGENCY
  5. AZILECT [Concomitant]
     Active Substance: RASAGILINE MESYLATE
     Indication: PARKINSON^S DISEASE
  6. CLOZAPINE. [Concomitant]
     Active Substance: CLOZAPINE
     Indication: INSOMNIA
  7. SIMVASTATIN. [Concomitant]
     Active Substance: SIMVASTATIN
     Indication: HYPERCHOLESTEROLAEMIA

REACTIONS (13)
  - Scan myocardial perfusion abnormal [Not Recovered/Not Resolved]
  - Speech disorder [Recovering/Resolving]
  - Dysstasia [Recovering/Resolving]
  - Hypokalaemia [Unknown]
  - Fall [Not Recovered/Not Resolved]
  - Cardiac dysfunction [Unknown]
  - Memory impairment [Recovering/Resolving]
  - Gait inability [Recovering/Resolving]
  - Blood magnesium decreased [Unknown]
  - Confusional state [Recovering/Resolving]
  - Hallucination [Not Recovered/Not Resolved]
  - Cardiac failure congestive [Recovering/Resolving]
  - Depression [Not Recovered/Not Resolved]

NARRATIVE: CASE EVENT DATE: 202001
